FAERS Safety Report 8024413-4 (Version None)
Quarter: 2011Q4

REPORT INFORMATION
  Report Type: 
  Country: None (occurrence: None)
  Receive Date: 20111130
  Receipt Date: 20110725
  Transmission Date: 20120403
  Serious: Yes (Other)
  Sender: FDA-Public Use
  Company Number: 332462

PATIENT
  Age: 4 Year
  Sex: Female
  Weight: 16.8 kg

DRUGS (2)
  1. NOVOLOG [Suspect]
     Indication: TYPE 1 DIABETES MELLITUS
     Dosage: , SUBCUTAN.-PUMP
     Route: 058
  2. NOVOLOG [Suspect]
     Dosage: , SUBCUTANEOUS
     Route: 058

REACTIONS (3)
  - URINE KETONE BODY PRESENT [None]
  - ACCIDENTAL OVERDOSE [None]
  - BLOOD GLUCOSE INCREASED [None]
